FAERS Safety Report 18862762 (Version 1)
Quarter: 2021Q1

REPORT INFORMATION
  Report Type: Report from Study
  Country: FR (occurrence: FR)
  Receive Date: 20210208
  Receipt Date: 20210208
  Transmission Date: 20210420
  Serious: Yes (Other)
  Sender: FDA-Public Use
  Company Number: FR-UCBSA-2021005096

PATIENT
  Sex: Female

DRUGS (1)
  1. CERTOLIZUMAB PEGOL PSO [Suspect]
     Active Substance: CERTOLIZUMAB PEGOL
     Indication: PRODUCT USED FOR UNKNOWN INDICATION
     Dosage: UNK

REACTIONS (6)
  - Pyrexia [Unknown]
  - Psoriasis [Unknown]
  - Therapy interrupted [Unknown]
  - Headache [Unknown]
  - Palmoplantar pustulosis [Unknown]
  - Injection site pain [Unknown]
